FAERS Safety Report 7960389-3 (Version None)
Quarter: 2011Q4

REPORT INFORMATION
  Report Type: 
  Country: None (occurrence: None)
  Receive Date: 20111206
  Receipt Date: 20111019
  Transmission Date: 20120403
  Serious: Yes (Hospitalization)
  Sender: FDA-Public Use
  Company Number: US-ROCHE-GNE305201

PATIENT
  Sex: Female
  Weight: 126.48 kg

DRUGS (13)
  1. PERCOCET [Concomitant]
     Indication: PROCEDURAL PAIN
  2. ZOLOFT [Concomitant]
     Indication: DEPRESSION
     Dosage: UNK
  3. PREDNISONE TAB [Concomitant]
     Indication: ASTHMA
     Dosage: UNK
  4. SYMBICORT [Concomitant]
     Indication: ASTHMA
     Dosage: UNK
  5. OMALIZUMAB [Suspect]
     Indication: ASTHMA
     Dosage: 225 MG, Q2W, PATIENT RECIEVED TREATMENT SINCE 17 MONTHS
     Route: 058
     Dates: start: 20100201
  6. PROMETHAZINE [Concomitant]
     Indication: NAUSEA
     Dosage: UNK
  7. SINGULAIR [Concomitant]
     Indication: ASTHMA
     Dosage: UNK
  8. ALBUTEROL INHALER [Concomitant]
     Indication: ASTHMA
     Dosage: UNK
  9. ABILIFY [Concomitant]
     Indication: DEPRESSION
     Dosage: UNK
  10. MULTI-VITAMIN [Concomitant]
     Indication: PREGNANCY
     Dosage: UNK
  11. ALBUTEROL [Concomitant]
     Indication: ASTHMA
     Dosage: UNK
  12. ZOLPIDEM [Concomitant]
     Indication: INSOMNIA
     Dosage: UNK
  13. MORPHINE [Concomitant]
     Indication: PROCEDURAL PAIN

REACTIONS (2)
  - ASTHMA [None]
  - MATERNAL EXPOSURE DURING PREGNANCY [None]
